FAERS Safety Report 4306912-1 (Version None)
Quarter: 2004Q1

REPORT INFORMATION
  Report Type: 
  Country: None (occurrence: None)
  Receive Date: 20040227
  Receipt Date: 20040216
  Transmission Date: 20041129
  Serious: Yes (Disabling)
  Sender: FDA-Public Use
  Company Number: PHFR2004GB01070

PATIENT
  Age: 80 Year
  Sex: Female

DRUGS (3)
  1. GLEEVEC [Suspect]
     Indication: GASTROINTESTINAL CARCINOMA
     Dosage: 400 MG/DAY
     Route: 048
     Dates: start: 20030813
  2. ASPIRIN [Concomitant]
     Dosage: 75 MG/DAY
     Route: 048
  3. SIMVASTATIN [Concomitant]
     Indication: HYPERCHOLESTEROLAEMIA
     Dosage: 10 MG/DAY
     Route: 048

REACTIONS (4)
  - MACULAR DEGENERATION [None]
  - MACULOPATHY [None]
  - PERIORBITAL OEDEMA [None]
  - VISUAL ACUITY REDUCED [None]
